FAERS Safety Report 18900932 (Version 1)
Quarter: 2021Q1

REPORT INFORMATION
  Report Type: Spontaneous
  Country: IN (occurrence: IN)
  Receive Date: 20210217
  Receipt Date: 20210217
  Transmission Date: 20210420
  Serious: No
  Sender: FDA-Public Use
  Company Number: IN-LUPIN LIMITED-2021-01757

PATIENT
  Age: 25 Year
  Sex: Female

DRUGS (2)
  1. CALCIUM [Suspect]
     Active Substance: CALCIUM
     Indication: BONE MARROW OEDEMA SYNDROME
     Dosage: 1000 MILLIGRAM, QD
     Route: 065
  2. VITAMIN D [VITAMIN D NOS] [Suspect]
     Active Substance: VITAMIN D NOS
     Indication: BONE MARROW OEDEMA SYNDROME
     Dosage: 60000 INTERNATIONAL UNIT, FOR 8 WEEKS
     Route: 065

REACTIONS (1)
  - Maternal exposure during breast feeding [Unknown]
